FAERS Safety Report 24737758 (Version 1)
Quarter: 2024Q4

REPORT INFORMATION
  Report Type: Spontaneous
  Country: PR (occurrence: None)
  Receive Date: 20241213
  Receipt Date: 20241213
  Transmission Date: 20250115
  Serious: Yes (Other)
  Sender: Public
  Company Number: None

PATIENT
  Age: 67 Year
  Sex: Male
  Weight: 94.5 kg

DRUGS (2)
  1. VYVGART HYTRULO [Suspect]
     Active Substance: EFGARTIGIMOD ALFA\HYALURONIDASE-QVFC
     Indication: Myasthenia gravis
     Dosage: 1008 MG 1 WEEK SUBCUTANEOUS?
     Route: 058
     Dates: start: 20241122
  2. Vyvgart Hytrulo Sub Sol 180-2000MG [Concomitant]
     Dates: start: 20241122

REACTIONS (1)
  - Muscle spasms [None]

NARRATIVE: CASE EVENT DATE: 20241213
